FAERS Safety Report 12925233 (Version 3)
Quarter: 2017Q1

REPORT INFORMATION
  Report Type: Report from Study
  Country: CA (occurrence: CA)
  Receive Date: 20161109
  Receipt Date: 20170126
  Transmission Date: 20170428
  Serious: Yes (Death, Other)
  Sender: FDA-Public Use
  Company Number: PHHY2016CA152165

PATIENT
  Age: 56 Year
  Sex: Male
  Weight: 70.3 kg

DRUGS (2)
  1. EXJADE [Suspect]
     Active Substance: DEFERASIROX
     Indication: IRON OVERLOAD
     Dosage: UNK
     Route: 048
  2. DESFERAL [Suspect]
     Active Substance: DEFEROXAMINE MESYLATE
     Indication: IRON OVERLOAD
     Dosage: UNK
     Route: 042

REACTIONS (11)
  - Seizure [Unknown]
  - Visual impairment [Unknown]
  - Serum ferritin increased [Unknown]
  - Weight decreased [Unknown]
  - Hypoacusis [Unknown]
  - Death [Fatal]
  - Malaise [Unknown]
  - Decreased appetite [Unknown]
  - Haemochromatosis [Unknown]
  - Confusional state [Unknown]
  - Vomiting [Unknown]

NARRATIVE: CASE EVENT DATE: 201610
